FAERS Safety Report 23696516 (Version 1)
Quarter: 2024Q2

REPORT INFORMATION
  Report Type: Spontaneous
  Country: US (occurrence: None)
  Receive Date: 20240401
  Receipt Date: 20240401
  Transmission Date: 20240716
  Serious: Yes (Life-Threatening)
  Sender: FDA-Public Use
  Company Number: None

PATIENT
  Age: 35 Year
  Sex: Female
  Weight: 56.25 kg

DRUGS (2)
  1. AMOXICILLIN\CLAVULANIC ACID [Suspect]
     Active Substance: AMOXICILLIN\CLAVULANIC ACID
     Indication: Sinusitis
     Dosage: OTHER QUANTITY : 1 TABLET(S)?FREQUENCY : TWICE A DAY;
     Route: 048
     Dates: start: 20240130, end: 20240204
  2. flonase [Concomitant]

REACTIONS (2)
  - Mucous stools [None]
  - Clostridium difficile infection [None]

NARRATIVE: CASE EVENT DATE: 20240301
